FAERS Safety Report 10038623 (Version 1)
Quarter: 2014Q1

REPORT INFORMATION
  Report Type: Spontaneous
  Country: US (occurrence: None)
  Receive Date: 20140306
  Receipt Date: 20140306
  Transmission Date: 20141002
  Serious: Yes (Hospitalization)
  Sender: FDA-Public Use
  Company Number: 163-21880-13073545

PATIENT
  Age: 76 Year
  Sex: Male
  Weight: 98.6 kg

DRUGS (10)
  1. REVLIMID [Suspect]
     Indication: PLASMA CELL MYELOMA
     Route: 048
     Dates: start: 20130118
  2. ACYCLOVIR (ACICLOVIR) (ACICLOVIR) [Concomitant]
  3. ALLOPURINOL [Concomitant]
  4. ASPIRIN (ACETYLSALICYLIC ACID) [Concomitant]
  5. DEXAMETHASONE [Concomitant]
  6. ENALAPRIL HYDROCHLOROTHIAZIDE (VASERETIC) [Concomitant]
  7. GLIMEPIRIDE [Concomitant]
  8. METOPROLOL TARTRATE [Concomitant]
  9. NIACIN (NICOTINIC ACID) [Concomitant]
  10. VELCADE (BORTEZOMIB) [Concomitant]

REACTIONS (2)
  - Pulmonary embolism [None]
  - Thrombosis [None]
